FAERS Safety Report 7842244-2 (Version None)
Quarter: 2011Q4

REPORT INFORMATION
  Report Type: 
  Country: None (occurrence: None)
  Receive Date: 20111025
  Receipt Date: 20111019
  Transmission Date: 20120403
  Serious: Yes (Hospitalization)
  Sender: FDA-Public Use
  Company Number: FR-PFIZER INC-2011251156

PATIENT
  Age: 85 Year
  Sex: Female

DRUGS (16)
  1. SOLU-MEDROL [Suspect]
     Indication: CHRONIC LYMPHOCYTIC LEUKAEMIA
     Dosage: UNK
     Dates: start: 20110617, end: 20110617
  2. ZOFRAN [Suspect]
     Dosage: UNK
     Route: 041
     Dates: start: 20110715, end: 20110715
  3. CYCLOPHOSPHAMIDE [Suspect]
     Indication: CHRONIC LYMPHOCYTIC LEUKAEMIA
     Dosage: UNK
     Route: 041
     Dates: start: 20110617, end: 20110618
  4. BACTRIM [Suspect]
     Indication: CHRONIC LYMPHOCYTIC LEUKAEMIA
     Dosage: 0.4286 DF (1 DF, 3X/WEEK)
     Route: 048
     Dates: start: 20110617, end: 20110715
  5. MABTHERA [Suspect]
     Indication: CHRONIC LYMPHOCYTIC LEUKAEMIA
     Dosage: UNK
     Route: 041
     Dates: start: 20110617, end: 20110617
  6. ACETAMINOPHEN [Suspect]
     Dosage: UNK
     Dates: start: 20110715, end: 20110715
  7. SOLU-MEDROL [Suspect]
     Dosage: UNK
     Route: 041
     Dates: start: 20110715, end: 20110715
  8. FLUDARABINE [Suspect]
     Dosage: UNK
     Route: 041
     Dates: start: 20110715, end: 20110715
  9. ACETAMINOPHEN [Suspect]
     Indication: CHRONIC LYMPHOCYTIC LEUKAEMIA
     Dosage: UNK
     Dates: start: 20110617, end: 20110617
  10. MABTHERA [Suspect]
     Dosage: UNK
     Route: 041
     Dates: start: 20110715, end: 20110715
  11. POLARAMINE [Suspect]
     Dosage: UNK
     Dates: start: 20110715, end: 20110715
  12. CYCLOPHOSPHAMIDE [Suspect]
     Dosage: UNK
     Route: 041
     Dates: start: 20110715, end: 20110715
  13. VALACYCLOVIR HYDROCHLORIDE [Suspect]
     Indication: CHRONIC LYMPHOCYTIC LEUKAEMIA
     Dosage: UNK
     Route: 048
     Dates: start: 20110617, end: 20110715
  14. POLARAMINE [Suspect]
     Indication: CHRONIC LYMPHOCYTIC LEUKAEMIA
     Dosage: UNK
     Dates: start: 20110617, end: 20110617
  15. ZOFRAN [Suspect]
     Indication: CHRONIC LYMPHOCYTIC LEUKAEMIA
     Dosage: UNK
     Route: 041
     Dates: start: 20110617, end: 20110618
  16. FLUDARABINE [Suspect]
     Indication: CHRONIC LYMPHOCYTIC LEUKAEMIA
     Dosage: UNK
     Route: 041
     Dates: start: 20110617, end: 20110618

REACTIONS (1)
  - ERYTHEMA MULTIFORME [None]
